FAERS Safety Report 5284143-9 (Version None)
Quarter: 2007Q2

REPORT INFORMATION
  Report Type: 
  Country: None (occurrence: None)
  Receive Date: 20070403
  Receipt Date: 20070328
  Transmission Date: 20071010
  Serious: Yes (Hospitalization)
  Sender: FDA-Public Use
  Company Number: FRWYE234728MAR07

PATIENT
  Age: 3 Year
  Sex: Male

DRUGS (1)
  1. ADVIL [Suspect]
     Dosage: UNKNOWN, BUT INTAKE OF 2 TABLETS AT LEAST
     Route: 048
     Dates: start: 20070216, end: 20070216

REACTIONS (4)
  - ABDOMINAL PAIN [None]
  - ACCIDENTAL DRUG INTAKE BY CHILD [None]
  - ACCIDENTAL OVERDOSE [None]
  - NAUSEA [None]
